FAERS Safety Report 7233141-4 (Version None)
Quarter: 2011Q1

REPORT INFORMATION
  Report Type: 
  Country: None (occurrence: None)
  Receive Date: 20110119
  Receipt Date: 20110113
  Transmission Date: 20110831
  Serious: Yes (Hospitalization, Other)
  Sender: FDA-Public Use
  Company Number: JP-PFIZER INC-2010172474

PATIENT
  Age: 79 Year
  Sex: Male

DRUGS (5)
  1. ZOSYN [Suspect]
     Indication: PNEUMONIA
     Dosage: 4.5 MG, 3X/DAY
     Route: 041
     Dates: start: 20101115, end: 20101118
  2. BIOFERMIN [Concomitant]
     Dosage: 3 DF, PER DAY
     Route: 048
     Dates: start: 20101117, end: 20101118
  3. HALCION [Concomitant]
     Dosage: 0.25 MG, UNK
     Route: 048
  4. LASIX [Suspect]
     Indication: RIGHT VENTRICULAR FAILURE
     Dosage: 20 MG, 1X/DAY
     Route: 048
     Dates: start: 20101109, end: 20101118
  5. THEODUR ^ELAN^ [Suspect]
     Indication: CHRONIC OBSTRUCTIVE PULMONARY DISEASE
     Dosage: 400 MG, 1X/DAY
     Route: 048
     Dates: start: 20101109, end: 20101118

REACTIONS (1)
  - RENAL FAILURE ACUTE [None]
